FAERS Safety Report 8886708 (Version 2)
Quarter: 2012Q4

REPORT INFORMATION
  Report Type: 
  Country: US (occurrence: US)
  Receive Date: 20121105
  Receipt Date: 20121130
  Transmission Date: 20130627
  Serious: Yes (Other)
  Sender: FDA-Public Use
  Company Number: US-PFIZER INC-2012274382

PATIENT
  Sex: Female

DRUGS (1)
  1. XANAX [Suspect]
     Dosage: 2 mg, 3x/day
     Route: 064
     Dates: start: 1995, end: 1996

REACTIONS (2)
  - Maternal exposure timing unspecified [Unknown]
  - Jaundice neonatal [Unknown]
